FAERS Safety Report 25655438 (Version 2)
Quarter: 2025Q4

REPORT INFORMATION
  Report Type: Spontaneous
  Country: US (occurrence: US)
  Receive Date: 20250807
  Receipt Date: 20251126
  Transmission Date: 20260117
  Serious: Yes (Other)
  Sender: PFIZER
  Company Number: US-PFIZER INC-202500158007

PATIENT
  Age: 76 Year
  Sex: Female

DRUGS (1)
  1. IBRANCE [Suspect]
     Active Substance: PALBOCICLIB
     Dosage: 1 TABLET (125MG) BY MOUTH FOR 21 DAYS, OFF 7 DAYS
     Route: 048

REACTIONS (3)
  - Hepatic cancer [Unknown]
  - Malignant neoplasm progression [Unknown]
  - Illness [Recovering/Resolving]
